FAERS Safety Report 7375787-9 (Version None)
Quarter: 2011Q1

REPORT INFORMATION
  Report Type: 
  Country: None (occurrence: None)
  Receive Date: 20110325
  Receipt Date: 20110316
  Transmission Date: 20110831
  Serious: Yes (Hospitalization)
  Sender: FDA-Public Use
  Company Number: A0753390A

PATIENT
  Age: 53 Year
  Sex: Female
  Weight: 99.1 kg

DRUGS (4)
  1. AVANDAMET [Suspect]
     Indication: TYPE 2 DIABETES MELLITUS
     Dosage: 4MG TWICE PER DAY
     Route: 048
     Dates: start: 20011101, end: 20061001
  2. METFORMIN HCL [Concomitant]
     Dates: start: 20020201
  3. METOPROLOL [Concomitant]
     Dates: start: 20060718
  4. AVANDIA [Suspect]
     Indication: TYPE 2 DIABETES MELLITUS
     Dosage: 4MG UNKNOWN
     Route: 048
     Dates: start: 20050101, end: 20050101

REACTIONS (10)
  - MYOCARDIAL INFARCTION [None]
  - DYSPNOEA [None]
  - FLUID RETENTION [None]
  - CHEST PAIN [None]
  - FATIGUE [None]
  - MULTIPLE INJURIES [None]
  - CORONARY ARTERY DISEASE [None]
  - CARDIAC DISORDER [None]
  - ANXIETY [None]
  - DEPRESSION [None]
